FAERS Safety Report 4340610-3 (Version None)
Quarter: 2004Q2

REPORT INFORMATION
  Report Type: 
  Country: None (occurrence: None)
  Receive Date: 20040414
  Receipt Date: 20040409
  Transmission Date: 20050107
  Serious: Yes (Hospitalization)
  Sender: FDA-Public Use
  Company Number: TCI2004A00754

PATIENT
  Sex: 0

DRUGS (3)
  1. LANSOPRAZOLE [Suspect]
     Indication: PROPHYLAXIS
     Dosage: 30 MG (30 MG, 1IN 1 D)
     Route: 048
  2. LANSOPRAZOLE [Suspect]
     Indication: ULCER
     Dosage: 30 MG (30 MG, 1IN 1 D)
     Route: 048
  3. STEROIDS (CORTICOSTEROIDS) [Concomitant]

REACTIONS (3)
  - ASCITES [None]
  - GALLBLADDER OEDEMA [None]
  - OEDEMA [None]
